FAERS Safety Report 20519884 (Version 2)
Quarter: 2022Q1

REPORT INFORMATION
  Report Type: Spontaneous
  Country: None (occurrence: US)
  Receive Date: 20220225
  Receipt Date: 20220307
  Transmission Date: 20220424
  Serious: No
  Sender: FDA-Public Use
  Company Number: US-B.Braun Medical Inc.-2126220

PATIENT
  Age: 7 Month
  Sex: Female

DRUGS (1)
  1. DEXTROSE AND SODIUM CHLORIDE [Suspect]
     Active Substance: DEXTROSE MONOHYDRATE\SODIUM CHLORIDE

REACTIONS (3)
  - Infusion site extravasation [Unknown]
  - Peripheral swelling [Unknown]
  - Blister [Unknown]
